FAERS Safety Report 7385925-X (Version None)
Quarter: 2011Q1

REPORT INFORMATION
  Report Type: 
  Country: None (occurrence: None)
  Receive Date: 20110331
  Receipt Date: 20110311
  Transmission Date: 20110831
  Serious: Yes (Hospitalization, Other)
  Sender: FDA-Public Use
  Company Number: US-RANBAXY-2011RR-41888

PATIENT
  Sex: Male

DRUGS (4)
  1. CIPROFLOXACIN [Suspect]
     Indication: EAR INFECTION
     Route: 065
  2. CIPROFLOXACIN [Suspect]
     Indication: SINUSITIS
  3. LEVAQUIN [Suspect]
     Indication: RESPIRATORY DISORDER
     Dosage: UNK
     Route: 048
     Dates: start: 19990101, end: 20090731
  4. CIPROFLOXACIN [Suspect]
     Indication: RESPIRATORY TRACT INFECTION

REACTIONS (2)
  - ROTATOR CUFF SYNDROME [None]
  - TENDONITIS [None]
